FAERS Safety Report 9227820 (Version 1)
Quarter: 2013Q2

REPORT INFORMATION
  Report Type: Spontaneous
  Country: US (occurrence: US)
  Receive Date: 20130412
  Receipt Date: 20130412
  Transmission Date: 20140414
  Serious: Yes (Hospitalization, Other)
  Sender: FDA-Public Use
  Company Number: US-OTSUKA-US-2013-10678

PATIENT
  Age: 71 Year
  Sex: Female
  Weight: 57 kg

DRUGS (11)
  1. SAMSCA [Suspect]
     Indication: HYPONATRAEMIA
     Dosage: 15 MG MILLIGRAM(S), SINGLE
     Route: 048
     Dates: start: 20130219, end: 20130311
  2. SAMSCA [Suspect]
     Indication: INAPPROPRIATE ANTIDIURETIC HORMONE SECRETION
     Dosage: 15 MG MILLIGRAM(S), SINGLE
     Route: 048
     Dates: start: 20130311, end: 20130311
  3. IRON COMPOUND [Concomitant]
  4. VITAMIN B [Concomitant]
  5. VITAMIN C [Concomitant]
  6. VITAMIN D NOS [Concomitant]
  7. PROTONIX [Concomitant]
  8. WARFARIN [Concomitant]
  9. METOPROLOL [Concomitant]
  10. BACTRIM [Concomitant]
  11. VALTREX [Concomitant]

REACTIONS (2)
  - Mental status changes [Recovered/Resolved]
  - Rapid correction of hyponatraemia [Unknown]
